FAERS Safety Report 24631827 (Version 2)
Quarter: 2024Q4

REPORT INFORMATION
  Report Type: Spontaneous
  Country: FR (occurrence: FR)
  Receive Date: 20241118
  Receipt Date: 20241204
  Transmission Date: 20250115
  Serious: Yes (Hospitalization)
  Sender: MYLAN
  Company Number: FR-ROCHE-10000117052

PATIENT
  Age: 52 Year
  Sex: Male

DRUGS (10)
  1. DEXAMETHASONE [Suspect]
     Active Substance: DEXAMETHASONE
     Indication: Mantle cell lymphoma
     Dosage: UNK, CYCLE (4 CYCLES)
     Route: 065
  2. CYTARABINE [Suspect]
     Active Substance: CYTARABINE
     Indication: Mantle cell lymphoma
     Dosage: UNK, CYCLE (4 CYCLES)
     Route: 065
  3. CARBOPLATIN [Suspect]
     Active Substance: CARBOPLATIN
     Indication: Mantle cell lymphoma
     Dosage: UNK, CYCLE (4 CYCLES)
     Route: 065
  4. RITUXIMAB [Suspect]
     Active Substance: RITUXIMAB
     Indication: Mantle cell lymphoma
     Dosage: UNK, CYCLE (4 CYCLES)
     Route: 042
     Dates: end: 202206
  5. RITUXIMAB [Suspect]
     Active Substance: RITUXIMAB
     Indication: Prophylaxis against transplant rejection
  6. PAXLOVID [Suspect]
     Active Substance: NIRMATRELVIR\RITONAVIR
     Indication: Breakthrough COVID-19
     Dosage: UNK
     Route: 065
  7. Comirnaty [Concomitant]
     Indication: Breakthrough COVID-19
     Dosage: 1 DOSAGE FORM (1 DOSES)
     Route: 065
     Dates: start: 202208
  8. Comirnaty [Concomitant]
     Dosage: 2 DOSAGE FORM (2 DOSES)
     Route: 065
     Dates: start: 202108
  9. CEFTRIAXONE [Concomitant]
     Active Substance: CEFTRIAXONE
     Indication: C-reactive protein increased
     Dosage: UNK
     Route: 065
  10. CEFTRIAXONE [Concomitant]
     Active Substance: CEFTRIAXONE
     Dosage: 1 GRAM, QD
     Route: 065

REACTIONS (4)
  - COVID-19 [Recovered/Resolved]
  - Vaccination failure [Unknown]
  - Drug ineffective [Unknown]
  - Off label use [Unknown]
